FAERS Safety Report 16260375 (Version 1)
Quarter: 2019Q2

REPORT INFORMATION
  Report Type: Spontaneous
  Country: US (occurrence: US)
  Receive Date: 20190501
  Receipt Date: 20190501
  Transmission Date: 20190711
  Serious: Yes (Other)
  Sender: FDA-Public Use
  Company Number: PHHY2019US095740

PATIENT
  Age: 46 Year
  Sex: Female

DRUGS (7)
  1. CYCLOSPORIN [Concomitant]
     Active Substance: CYCLOSPORINE
     Indication: RENAL TRANSPLANT
     Dosage: 1 DF, BID (125 MG IN MORNING; 100 MG IN EVENING)
     Route: 065
  2. PREDNISONE. [Concomitant]
     Active Substance: PREDNISONE
     Indication: RENAL TRANSPLANT
     Dosage: 2.5 MG, UNK
     Route: 065
  3. CYCLOSPORIN [Concomitant]
     Active Substance: CYCLOSPORINE
     Indication: IMMUNOSUPPRESSANT DRUG THERAPY
  4. PREDNISONE. [Concomitant]
     Active Substance: PREDNISONE
     Indication: IMMUNOSUPPRESSANT DRUG THERAPY
  5. OMEPRAZOLE. [Suspect]
     Active Substance: OMEPRAZOLE
     Indication: GASTRITIS
     Route: 065
  6. MYCOPHENOLIC ACID. [Concomitant]
     Active Substance: MYCOPHENOLIC ACID
     Indication: IMMUNOSUPPRESSANT DRUG THERAPY
  7. MYCOPHENOLIC ACID. [Concomitant]
     Active Substance: MYCOPHENOLIC ACID
     Indication: RENAL TRANSPLANT
     Dosage: 540 MG, BID
     Route: 065

REACTIONS (2)
  - Tubulointerstitial nephritis [Recovering/Resolving]
  - Complications of transplanted kidney [Recovering/Resolving]
